FAERS Safety Report 24350125 (Version 1)
Quarter: 2024Q3

REPORT INFORMATION
  Report Type: Report from Study
  Country: US (occurrence: US)
  Receive Date: 20240923
  Receipt Date: 20240923
  Transmission Date: 20241016
  Serious: Yes (Disabling)
  Sender: VIFOR
  Company Number: US-Vifor (International) Inc.-VIT-2024-08568

PATIENT
  Sex: Female
  Weight: 59.474 kg

DRUGS (1)
  1. VELPHORO [Suspect]
     Active Substance: SUCROFERRIC OXYHYDROXIDE
     Indication: Product used for unknown indication
     Dosage: 500 MG 3 TIMES IN A DAY WITH MEALS
     Route: 048

REACTIONS (3)
  - Dependence on oxygen therapy [Unknown]
  - Vein disorder [Unknown]
  - Surgery [Unknown]
